FAERS Safety Report 4961044-4 (Version None)
Quarter: 2006Q1

REPORT INFORMATION
  Report Type: 
  Country: None (occurrence: None)
  Receive Date: 20060201
  Receipt Date: 20051201
  Transmission Date: 20060701
  Serious: No
  Sender: FDA-Public Use
  Company Number: 2005PV005357

PATIENT
  Age: 55 Year
  Sex: Female
  Weight: 71.6683 kg

DRUGS (3)
  1. BYETTA [Suspect]
     Indication: DIABETES MELLITUS NON-INSULIN-DEPENDENT
     Dosage: 10 MCG; BID; SC   5 MCG; BID; SC
     Route: 058
     Dates: start: 20051030, end: 20051129
  2. BYETTA [Suspect]
     Indication: DIABETES MELLITUS NON-INSULIN-DEPENDENT
     Dosage: 10 MCG; BID; SC   5 MCG; BID; SC
     Route: 058
     Dates: start: 20051130
  3. ZELNORM [Concomitant]

REACTIONS (2)
  - CONDITION AGGRAVATED [None]
  - CONSTIPATION [None]
